FAERS Safety Report 5683865-5 (Version None)
Quarter: 2008Q1

REPORT INFORMATION
  Report Type: 
  Country: None (occurrence: None)
  Receive Date: 20080326
  Receipt Date: 20080313
  Transmission Date: 20080703
  Serious: Yes (Hospitalization)
  Sender: FDA-Public Use
  Company Number: 000050

PATIENT
  Age: 80 Year
  Sex: Male
  Weight: 58 kg

DRUGS (4)
  1. PLETAL [Suspect]
     Indication: CEREBRAL INFARCTION
     Dosage: 50 MG, BID ORAL
     Route: 048
     Dates: start: 20071018, end: 20071227
  2. ASPIRIN [Concomitant]
  3. ADALATE-CR (NIFEDIPINE) TABLET [Concomitant]
  4. METHYCOBAL (MECOBALAMIN) TABLET [Concomitant]

REACTIONS (3)
  - ATRIAL FIBRILLATION [None]
  - CARDIAC FAILURE [None]
  - DYSPNOEA EXERTIONAL [None]
